FAERS Safety Report 9301090 (Version 2)
Quarter: 2013Q3

REPORT INFORMATION
  Report Type: Report from Study
  Country: US (occurrence: US)
  Receive Date: 20130521
  Receipt Date: 20130723
  Transmission Date: 20140515
  Serious: Yes (Other)
  Sender: FDA-Public Use
  Company Number: US-ABBOTT-13P-163-1090088-00

PATIENT
  Sex: Female
  Weight: 98.52 kg

DRUGS (1)
  1. HUMIRA [Suspect]
     Indication: PSORIATIC ARTHROPATHY

REACTIONS (3)
  - Surgery [Unknown]
  - Psoriatic arthropathy [Unknown]
  - Drug dose omission [Unknown]
